FAERS Safety Report 4339938-2 (Version None)
Quarter: 2004Q2

REPORT INFORMATION
  Report Type: 
  Country: None (occurrence: None)
  Receive Date: 20040416
  Receipt Date: 20040322
  Transmission Date: 20050107
  Serious: Yes (Life-Threatening, Hospitalization)
  Sender: FDA-Public Use
  Company Number: FR-GLAXOSMITHKLINE-B0327413A

PATIENT
  Age: 36 Year
  Sex: Male
  Weight: 52 kg

DRUGS (3)
  1. ZIAGEN [Suspect]
     Indication: HIV INFECTION
     Route: 048
     Dates: start: 20030602
  2. KALETRA [Suspect]
     Route: 048
     Dates: start: 20010226
  3. VIDEX [Suspect]
     Route: 048
     Dates: start: 20020729

REACTIONS (3)
  - HYPERTRIGLYCERIDAEMIA [None]
  - LIPODYSTROPHY ACQUIRED [None]
  - MYOCARDIAL INFARCTION [None]
